FAERS Safety Report 9047009 (Version 1)
Quarter: 2013Q1

REPORT INFORMATION
  Report Type: Spontaneous
  Country: US (occurrence: None)
  Receive Date: 20130129
  Receipt Date: 20130129
  Transmission Date: 20140127
  Serious: No
  Sender: FDA-Public Use
  Company Number: None

PATIENT
  Age: 57 Year
  Sex: Male

DRUGS (5)
  1. PEGINTRON [Suspect]
     Indication: HEPATITIS C
     Route: 058
     Dates: start: 20121104, end: 20130125
  2. RIBAVIRIN [Suspect]
     Indication: HEPATITIS C
     Route: 048
     Dates: start: 20121013, end: 20130125
  3. NADOL [Concomitant]
  4. PRILOSEC [Concomitant]
  5. TRAZADONE [Concomitant]

REACTIONS (1)
  - Thrombocytopenia [None]
